FAERS Safety Report 7474382-0 (Version None)
Quarter: 2011Q2

REPORT INFORMATION
  Report Type: 
  Country: None (occurrence: None)
  Receive Date: 20110511
  Receipt Date: 20101217
  Transmission Date: 20111010
  Serious: Yes (Other)
  Sender: FDA-Public Use
  Company Number: US-BAYER-200829340NA

PATIENT
  Sex: Female
  Weight: 132 kg

DRUGS (52)
  1. ALTACE [Concomitant]
  2. AMITRIPTYLINE HCL [Concomitant]
  3. HYDROCODONE BITARTRATE [Concomitant]
  4. PLAVIX [Concomitant]
  5. IMITREX [Concomitant]
  6. OPTIMARK [Suspect]
     Indication: NUCLEAR MAGNETIC RESONANCE IMAGING
  7. ALDACTONE [POTASSIUM CANRENOATE] [Concomitant]
  8. MEXILETINE HYDROCHLORIDE [Concomitant]
  9. SINGULAIR [Concomitant]
  10. LASIX [Concomitant]
  11. OXYCONTIN [Concomitant]
  12. PROTONIX [Concomitant]
  13. ADVAIR DISKUS 100/50 [Concomitant]
  14. AMBIEN [Concomitant]
  15. AMIODARONE HCL [Concomitant]
  16. POTASSIUM CHLORIDE [Concomitant]
  17. LIPITOR [Concomitant]
  18. OMNISCAN [Suspect]
     Indication: NUCLEAR MAGNETIC RESONANCE IMAGING
     Dosage: UNK
     Dates: start: 20000816, end: 20000816
  19. PROHANCE [Suspect]
     Indication: NUCLEAR MAGNETIC RESONANCE IMAGING
  20. ONE-A-DAY [MINERALS NOS,VITAMINS NOS] [Concomitant]
  21. TEMAZ [Concomitant]
  22. NEURONTIN [Concomitant]
  23. PHENERGAN HCL [Concomitant]
  24. NOVOLIN [INSULIN] [Concomitant]
  25. NOVOLOG [Concomitant]
  26. HYZAAR [Concomitant]
  27. ELAVIL [Concomitant]
  28. METOPROLOL SUCCINATE [Concomitant]
  29. METOPROLOL SUCCINATE [Concomitant]
  30. SILDENAFIL [Concomitant]
  31. EFFEXOR XR [Concomitant]
  32. VITAMINS [Concomitant]
  33. MULTIHANCE [Suspect]
     Indication: NUCLEAR MAGNETIC RESONANCE IMAGING
  34. XOPENEX [Concomitant]
  35. SINGULAIR [Concomitant]
  36. NEURONTIN [Concomitant]
  37. LASIX [Concomitant]
  38. MELPHALAN HYDROCHLORIDE [Concomitant]
  39. SPIRONOLACTONE [Concomitant]
  40. MAGNESIUM OXIDE [Concomitant]
  41. DIGOXIN [Concomitant]
  42. MAGNEVIST [Suspect]
     Indication: NUCLEAR MAGNETIC RESONANCE IMAGING
     Dosage: UNK
     Dates: start: 20040823, end: 20040823
  43. VICODIN [Concomitant]
  44. LIDODERM [Concomitant]
  45. VAGIFEM [Concomitant]
  46. ACETAMINOPHEN [Concomitant]
  47. PROTONIX [Concomitant]
  48. METOLAZONE [Concomitant]
  49. SEROQUEL [Concomitant]
  50. IMITREX [Concomitant]
  51. COUMADIN [Concomitant]
  52. LEVOTHYROXINE SODIUM [Concomitant]

REACTIONS (8)
  - PAIN [None]
  - INJURY [None]
  - ANXIETY [None]
  - GENERAL PHYSICAL HEALTH DETERIORATION [None]
  - EMOTIONAL DISTRESS [None]
  - MOBILITY DECREASED [None]
  - NEPHROGENIC SYSTEMIC FIBROSIS [None]
  - PARAESTHESIA [None]
